FAERS Safety Report 6185958-5 (Version None)
Quarter: 2009Q2

REPORT INFORMATION
  Report Type: 
  Country: None (occurrence: None)
  Receive Date: 20090511
  Receipt Date: 20090504
  Transmission Date: 20091009
  Serious: Yes (Hospitalization)
  Sender: FDA-Public Use
  Company Number: US-ELI_LILLY_AND_COMPANY-US200905000590

PATIENT
  Sex: Female

DRUGS (3)
  1. BYETTA [Suspect]
     Dosage: UNK, UNKNOWN
     Route: 058
  2. BYETTA [Suspect]
     Dosage: UNK, UNKNOWN
     Route: 058
  3. LANTUS [Concomitant]
     Dosage: UNK, UNKNOWN

REACTIONS (2)
  - CARDIAC FAILURE CONGESTIVE [None]
  - VOMITING [None]
